FAERS Safety Report 8584866-X (Version None)
Quarter: 2012Q3

REPORT INFORMATION
  Report Type: 
  Country: None (occurrence: None)
  Receive Date: 20120810
  Receipt Date: 20120727
  Transmission Date: 20120928
  Serious: Yes (Hospitalization, Other)
  Sender: FDA-Public Use
  Company Number: US-ELI_LILLY_AND_COMPANY-US201207002737

PATIENT
  Sex: Male
  Weight: 90.703 kg

DRUGS (1)
  1. CYMBALTA [Suspect]
     Indication: DEPRESSION
     Dosage: 90 MG, QD
     Route: 048
     Dates: start: 20071101, end: 20120613

REACTIONS (3)
  - RENAL FAILURE [None]
  - SEROTONIN SYNDROME [None]
  - KNEE OPERATION [None]
